FAERS Safety Report 4293784-7 (Version None)
Quarter: 2004Q1

REPORT INFORMATION
  Report Type: 
  Country: None (occurrence: None)
  Receive Date: 20040210
  Receipt Date: 20040203
  Transmission Date: 20041129
  Serious: Yes (Hospitalization)
  Sender: FDA-Public Use
  Company Number: STA-AE-04-MTX-009

PATIENT
  Age: 68 Year
  Sex: Female

DRUGS (4)
  1. METHOTREXATE [Suspect]
     Indication: RHEUMATOID ARTHRITIS
     Dosage: 17.5 MG 1X PER 1 WK, ORAL
     Route: 048
     Dates: start: 20021201, end: 20031209
  2. PREDNISONE [Suspect]
     Indication: RHEUMATOID ARTHRITIS
     Dosage: 5 MG 1X PER 1 DAY, ORAL
     Route: 048
     Dates: start: 20030701
  3. ENBREL [Suspect]
     Indication: RHEUMATOID ARTHRITIS
     Dosage: 25 MG 2X PER 1 WK, SC
     Route: 058
     Dates: start: 20030509, end: 20031201
  4. ENBREL [Suspect]
     Indication: RHEUMATOID ARTHRITIS
     Dosage: 25 MG 2X PER 1 WK, SC
     Route: 058
     Dates: start: 20031201

REACTIONS (9)
  - ARTHRALGIA [None]
  - JOINT EFFUSION [None]
  - LIVER FUNCTION TEST ABNORMAL [None]
  - LUNG INFECTION [None]
  - LUNG INFILTRATION [None]
  - PNEUMONITIS [None]
  - POLYARTHRITIS [None]
  - SYNOVITIS [None]
  - TOOTH ABSCESS [None]
